FAERS Safety Report 17692242 (Version 8)
Quarter: 2021Q1

REPORT INFORMATION
  Report Type: Spontaneous
  Country: US (occurrence: US)
  Receive Date: 20200422
  Receipt Date: 20210310
  Transmission Date: 20210419
  Serious: No
  Sender: FDA-Public Use
  Company Number: US-PFIZER INC-2020157146

PATIENT
  Age: 63 Year
  Sex: Male
  Weight: 113.3 kg

DRUGS (4)
  1. LYRICA [Suspect]
     Active Substance: PREGABALIN
     Indication: SPINAL OSTEOARTHRITIS
     Dosage: 300 MG, 2X/DAY (1 CAPSULE TWICE A DAY 90 DAYS) (1 TO 3 HOURS BEFORE BEDTIME IN THE EVENING)
     Route: 048
  2. LYRICA [Suspect]
     Active Substance: PREGABALIN
     Indication: LUMBAR RADICULOPATHY
     Dosage: 225 MG, 3X/DAY (1 TO 3 HOURS BEFORE BEDTIME 3 TIMES A DAY)
     Route: 048
  3. LYRICA [Suspect]
     Active Substance: PREGABALIN
     Indication: CERVICAL RADICULOPATHY
  4. LYRICA [Suspect]
     Active Substance: PREGABALIN
     Indication: SPINAL OSTEOARTHRITIS

REACTIONS (4)
  - Prescribed overdose [Unknown]
  - Hypoacusis [Unknown]
  - Memory impairment [Unknown]
  - Cognitive disorder [Unknown]
